FAERS Safety Report 9113290 (Version 3)
Quarter: 2014Q3

REPORT INFORMATION
  Report Type: Spontaneous
  Country: FR (occurrence: FR)
  Receive Date: 20130211
  Receipt Date: 20140911
  Transmission Date: 20150326
  Serious: Yes (Life-Threatening, Other)
  Sender: FDA-Public Use
  Company Number: FR-009507513-0908FRA00027

PATIENT
  Age: 36 Year
  Sex: Female

DRUGS (14)
  1. ZECLAR [Suspect]
     Active Substance: CLARITHROMYCIN
     Indication: DISSEMINATED TUBERCULOSIS
     Dosage: 1 DF, QD
     Route: 048
     Dates: end: 20090503
  2. SUSTIVA [Suspect]
     Active Substance: EFAVIRENZ
     Indication: HIV INFECTION
     Dosage: 600 MG, QD
     Route: 048
     Dates: start: 20090505, end: 20090516
  3. RIFADIN [Suspect]
     Active Substance: RIFAMPIN
     Indication: DISSEMINATED TUBERCULOSIS
     Dosage: 600 MG, QD
     Route: 048
     Dates: start: 20090503
  4. ANSATIPINE [Concomitant]
     Active Substance: RIFABUTIN
     Indication: DISSEMINATED TUBERCULOSIS
     Dosage: 150 MG, QAM
     Route: 048
     Dates: start: 20090425, end: 20090503
  5. RIFADIN [Suspect]
     Active Substance: RIFAMPIN
     Dosage: 300 MG, BID
     Dates: start: 20090525
  6. MYAMBUTOL [Suspect]
     Active Substance: ETHAMBUTOL HYDROCHLORIDE
     Indication: TUBERCULOSIS
     Dosage: 1200 MG, QD
     Route: 048
     Dates: start: 20090425
  7. PIRILENE [Suspect]
     Active Substance: PYRAZINAMIDE
     Indication: DISSEMINATED TUBERCULOSIS
     Dosage: 1500 MG, QD
     Route: 048
     Dates: start: 20090422, end: 20090516
  8. RIMIFON [Suspect]
     Active Substance: ISONIAZID
     Indication: TUBERCULOSIS
     Dosage: 300 MG, QD
     Route: 048
     Dates: start: 20090425, end: 20090516
  9. FUZEON [Suspect]
     Active Substance: ENFUVIRTIDE
     Indication: HIV INFECTION
     Dosage: 1 DF, BID
     Route: 058
     Dates: start: 20090505, end: 20090516
  10. BACTRIM [Suspect]
     Active Substance: SULFAMETHOXAZOLE\TRIMETHOPRIM
     Indication: ANTIFUNGAL PROPHYLAXIS
     Dosage: 12.45 IU, QD
     Route: 048
     Dates: start: 20090425, end: 20090516
  11. IMOVANE [Suspect]
     Active Substance: ZOPICLONE
     Indication: INSOMNIA
     Dosage: 8 MG, QD
     Route: 048
     Dates: start: 20090427, end: 20090516
  12. SINGULAIR [Suspect]
     Active Substance: MONTELUKAST SODIUM
     Indication: IMMUNE RECONSTITUTION INFLAMMATORY SYNDROME
     Dosage: 10 MG, QD
     Route: 048
     Dates: start: 20090511, end: 20090516
  13. MYAMBUTOL [Suspect]
     Active Substance: ETHAMBUTOL HYDROCHLORIDE
     Dosage: 400MG,TID
     Dates: start: 20090525
  14. TRUVADA [Suspect]
     Active Substance: EMTRICITABINE\TENOFOVIR DISOPROXIL FUMARATE
     Indication: HIV INFECTION
     Dosage: 1DF, QD
     Route: 048
     Dates: start: 20090505, end: 20090516

REACTIONS (10)
  - Jaundice [Unknown]
  - Tuberculosis liver [Unknown]
  - Immune reconstitution inflammatory syndrome [Unknown]
  - Tachypnoea [Unknown]
  - Insomnia [Unknown]
  - Cholestasis [Unknown]
  - Granulomatous liver disease [Unknown]
  - Hepatitis fulminant [Recovered/Resolved]
  - Off label use [Unknown]
  - Hepatic encephalopathy [Unknown]

NARRATIVE: CASE EVENT DATE: 20090511
